FAERS Safety Report 5242152-X (Version None)
Quarter: 2007Q1

REPORT INFORMATION
  Report Type: 
  Country: None (occurrence: None)
  Receive Date: 20070213
  Receipt Date: 20070205
  Transmission Date: 20070707
  Serious: Yes (Hospitalization)
  Sender: FDA-Public Use
  Company Number: TPA2007A00156

PATIENT
  Age: 66 Year
  Sex: Female

DRUGS (4)
  1. PIOGLITAZONE HCL [Suspect]
     Indication: GLUCOSE TOLERANCE DECREASED
     Dosage: 1 IN 1 D, PER ORAL
     Route: 048
     Dates: start: 20060127
  2. NIFEDIPINE ER (NIFEDIPINE) [Concomitant]
  3. CENTRUM SILVER (ASCORBIC ACID, TOCOPHEROL ACETATE, RETINOL, ZINC, CALC [Concomitant]
  4. SEVEN SEAS CAPSULES (ALL OTHER THERAPEUTIC PRODUCTS) [Concomitant]

REACTIONS (6)
  - ANOREXIA [None]
  - CHEST PAIN [None]
  - DYSPNOEA [None]
  - STRESS [None]
  - THYROID MASS [None]
  - WEIGHT DECREASED [None]
